FAERS Safety Report 12413604 (Version 2)
Quarter: 2016Q3

REPORT INFORMATION
  Report Type: Report from Study
  Country: US (occurrence: US)
  Receive Date: 20160527
  Receipt Date: 20160906
  Transmission Date: 20161109
  Serious: No
  Sender: FDA-Public Use
  Company Number: US-AMGEN-USASL2016027915

PATIENT
  Age: 77 Year
  Sex: Male

DRUGS (1)
  1. BLINCYTO [Suspect]
     Active Substance: BLINATUMOMAB
     Indication: ACUTE LYMPHOCYTIC LEUKAEMIA
     Dosage: UNK
     Route: 065
     Dates: start: 201510, end: 201604

REACTIONS (4)
  - Platelet count decreased [Unknown]
  - Catheter site haemorrhage [Unknown]
  - Frequent bowel movements [Unknown]
  - Fatigue [Unknown]
